FAERS Safety Report 7261574-9 (Version None)
Quarter: 2011Q1

REPORT INFORMATION
  Report Type: 
  Country: None (occurrence: None)
  Receive Date: 20110130
  Receipt Date: 20101001
  Transmission Date: 20110831
  Serious: No
  Sender: FDA-Public Use
  Company Number: US-ABBOTT-10P-163-0675239-00

PATIENT
  Age: 21 Year
  Sex: Female

DRUGS (3)
  1. KLONOPIN [Concomitant]
     Indication: ANXIETY
  2. HUMIRA [Suspect]
     Indication: CROHN'S DISEASE
     Dosage: AFTER LOADING DOSES
     Dates: start: 20100901
  3. PREDNISONE [Concomitant]
     Indication: PRODUCT USED FOR UNKNOWN INDICATION
     Dosage: SLOWLY TAPERING OFF

REACTIONS (6)
  - CONTUSION [None]
  - FATIGUE [None]
  - DIZZINESS [None]
  - LACERATION [None]
  - FALL [None]
  - ASTHENIA [None]
